FAERS Safety Report 7731086-4 (Version None)
Quarter: 2011Q3

REPORT INFORMATION
  Report Type: 
  Country: None (occurrence: None)
  Receive Date: 20110906
  Receipt Date: 20110906
  Transmission Date: 20111222
  Serious: Yes (Life-Threatening, Hospitalization)
  Sender: FDA-Public Use
  Company Number: None

PATIENT
  Sex: Male
  Weight: 70.306 kg

DRUGS (1)
  1. AMEVIVE [Suspect]
     Indication: PSORIASIS
     Dosage: ONE VIAL
     Route: 030
     Dates: start: 20090901, end: 20091008

REACTIONS (2)
  - OROPHARYNGEAL PAIN [None]
  - NECK PAIN [None]
